FAERS Safety Report 21669995 (Version 1)
Quarter: 2022Q4

REPORT INFORMATION
  Report Type: Spontaneous
  Country: None (occurrence: GB)
  Receive Date: 20221201
  Receipt Date: 20221201
  Transmission Date: 20230113
  Serious: Yes (Other)
  Sender: FDA-Public Use
  Company Number: GB-Ascend Therapeutics US, LLC-2135446

PATIENT
  Sex: Female

DRUGS (3)
  1. ESTROGEL [Suspect]
     Active Substance: ESTRADIOL
     Indication: Menopause
     Route: 065
     Dates: start: 20221026, end: 20221026
  2. ESTROGEL [Suspect]
     Active Substance: ESTRADIOL
  3. ESTRADIOL [Suspect]
     Active Substance: ESTRADIOL
     Route: 065
     Dates: start: 20221026, end: 20221026

REACTIONS (7)
  - Breast tenderness [Not Recovered/Not Resolved]
  - Paraesthesia oral [Recovering/Resolving]
  - Throat irritation [Recovered/Resolved]
  - Confusional state [Recovered/Resolved]
  - Pain in extremity [Recovering/Resolving]
  - Pruritus [Recovered/Resolved]
  - Abdominal pain upper [Unknown]

NARRATIVE: CASE EVENT DATE: 20221001
